FAERS Safety Report 5089136-2 (Version None)
Quarter: 2006Q3

REPORT INFORMATION
  Report Type: 
  Country: None (occurrence: None)
  Receive Date: 20060727
  Receipt Date: 20060525
  Transmission Date: 20061208
  Serious: Yes (Other)
  Sender: FDA-Public Use
  Company Number: 2006069679

PATIENT
  Age: 66 Year
  Sex: Female

DRUGS (1)
  1. LYRICA [Suspect]
     Indication: NEURALGIA
     Dosage: 150 MG (75 MG, 2 IN 1 D), UNKNOWN
     Dates: start: 20060427

REACTIONS (3)
  - DIZZINESS [None]
  - FATIGUE [None]
  - TREMOR [None]
